FAERS Safety Report 9674471 (Version 4)
Quarter: 2014Q1

REPORT INFORMATION
  Report Type: Spontaneous
  Country: US (occurrence: US)
  Receive Date: 20131107
  Receipt Date: 20140206
  Transmission Date: 20141002
  Serious: No
  Sender: FDA-Public Use
  Company Number: US-009507513-1311USA002294

PATIENT
  Age: 14 Year
  Sex: Female

DRUGS (2)
  1. NEXPLANON [Suspect]
     Dosage: DOSE AND FREQUENCY: 1 ROD EVERY THREE YEARS, LEFT ARM
     Route: 059
     Dates: start: 20131024, end: 20131024
  2. NEXPLANON [Suspect]
     Dosage: DOSE AND FREQUENCY: 1 ROD EVERY THREE YEARS
     Route: 059
     Dates: start: 20131024

REACTIONS (3)
  - Device difficult to use [Recovered/Resolved]
  - Product quality issue [Unknown]
  - No adverse event [Unknown]
